FAERS Safety Report 4428412-0 (Version None)
Quarter: 2004Q3

REPORT INFORMATION
  Report Type: 
  Country: None (occurrence: None)
  Receive Date: 20040818
  Receipt Date: 20040813
  Transmission Date: 20050211
  Serious: Yes (Disabling)
  Sender: FDA-Public Use
  Company Number: 200418012GDDC

PATIENT
  Age: 42 Year
  Sex: Female
  Weight: 78 kg

DRUGS (4)
  1. INSULIN GLARGINE [Suspect]
     Indication: DIABETES MELLITUS INSULIN-DEPENDENT
     Dates: start: 20030603
  2. HUMAN ACTRAPID [Suspect]
     Indication: DIABETES MELLITUS INSULIN-DEPENDENT
  3. TRANEXAMIC ACID [Concomitant]
     Indication: MENORRHAGIA
     Route: 048
     Dates: start: 20000101
  4. OXYTETRACYCLINE [Concomitant]
     Indication: ROSACEA
     Route: 048

REACTIONS (1)
  - ARTHRALGIA [None]
